FAERS Safety Report 17985445 (Version 3)
Quarter: 2020Q3

REPORT INFORMATION
  Report Type: Report from Study
  Country: CN (occurrence: CN)
  Receive Date: 20200706
  Receipt Date: 20200724
  Transmission Date: 20201103
  Serious: Yes (Other)
  Sender: FDA-Public Use
  Company Number: CN-PFIZER INC-2020257592

PATIENT

DRUGS (5)
  1. SODIUM CHLORIDE. [Concomitant]
     Active Substance: SODIUM CHLORIDE
     Indication: PANCREATITIS ACUTE
     Dosage: 0.5 G, 1X/DAY  (0.5 G/TIME)
     Route: 042
  2. ENOXAPARIN SODIUM. [Concomitant]
     Active Substance: ENOXAPARIN SODIUM
     Indication: PANCREATITIS ACUTE
     Dosage: 6000 INTERNATIONAL UNIT, Q12H (10?14 D)
     Route: 058
  3. PANTOLOC [Suspect]
     Active Substance: PANTOPRAZOLE SODIUM
     Indication: PANCREATITIS ACUTE
     Dosage: 40 MILLIGRAM, BID
     Route: 041
  4. LEVOFLOXACIN HYDROCHLORIDE [Concomitant]
     Active Substance: LEVOFLOXACIN HYDROCHLORIDE
     Indication: PANCREATITIS ACUTE
     Dosage: 0.5 GRAM, QD
     Route: 041
  5. SOMATOSTATIN [Concomitant]
     Active Substance: SOMATOSTATIN
     Indication: PANCREATITIS ACUTE
     Dosage: UNK UNK, QD (MICROSCALE PUMPING;6?12 MG/D)
     Route: 065

REACTIONS (1)
  - Haemorrhage [Unknown]
